FAERS Safety Report 6442931-7 (Version None)
Quarter: 2009Q4

REPORT INFORMATION
  Report Type: 
  Country: None (occurrence: None)
  Receive Date: 20091117
  Receipt Date: 20091106
  Transmission Date: 20100525
  Serious: Yes (Other)
  Sender: FDA-Public Use
  Company Number: FR-AMGEN-US374156

PATIENT
  Age: 60 Year
  Sex: Male

DRUGS (1)
  1. ENBREL [Suspect]
     Indication: RHEUMATOID ARTHRITIS
     Dosage: UNKNOWN
     Route: 058
     Dates: start: 20060101, end: 20090701

REACTIONS (9)
  - ABASIA [None]
  - APRAXIA [None]
  - ATAXIA [None]
  - BALANCE DISORDER [None]
  - CONDITION AGGRAVATED [None]
  - EXTENSOR PLANTAR RESPONSE [None]
  - PARKINSONIAN GAIT [None]
  - RHEUMATOID ARTHRITIS [None]
  - SPEECH DISORDER [None]
